FAERS Safety Report 9972443 (Version 1)
Quarter: 2014Q1

REPORT INFORMATION
  Report Type: Spontaneous
  Country: US (occurrence: None)
  Receive Date: 20140305
  Receipt Date: 20140305
  Transmission Date: 20141002
  Serious: Yes (Other)
  Sender: FDA-Public Use
  Company Number: None

PATIENT
  Age: 52 Year
  Sex: Female

DRUGS (10)
  1. ADCIRCA [Suspect]
     Indication: PULMONARY ARTERIAL HYPERTENSION
     Dosage: 2 TABLETS QD ORAL
     Route: 048
  2. TYVASO [Concomitant]
  3. FUROSEMIDE [Concomitant]
  4. LISINOPRIL [Concomitant]
  5. LEXAPRO [Concomitant]
  6. ATORVASTATIN [Concomitant]
  7. ASPARIN [Concomitant]
  8. ALBUTEROL [Concomitant]
  9. POTASSIUM [Concomitant]
  10. TRAZODONE [Concomitant]

REACTIONS (2)
  - Dyspnoea exertional [None]
  - Therapy cessation [None]
